FAERS Safety Report 10360966 (Version 1)
Quarter: 2014Q3

REPORT INFORMATION
  Report Type: Spontaneous
  Country: PT (occurrence: None)
  Receive Date: 20140731
  Receipt Date: 20140731
  Transmission Date: 20150326
  Serious: Yes (Life-Threatening)
  Sender: FDA-Public Use
  Company Number: FK201402894

PATIENT
  Age: 59 Year
  Sex: Female
  Weight: 87.6 kg

DRUGS (7)
  1. RANITIDINA (RANTIDINE HYDROCHLORIDE) [Concomitant]
  2. ONDANSETROM (ONDANSETRON) [Concomitant]
  3. METILPREDNISOLONA (METHYLPREDNISOLONE) [Concomitant]
  4. DIAZEPAM (DIAZEPAM) [Concomitant]
     Active Substance: DIAZEPAM
  5. DEXAMETASONA (DEXAMETHASONE) [Concomitant]
  6. PACLITAXEL. [Suspect]
     Active Substance: PACLITAXEL
     Indication: BREAST CANCER
     Dosage: 80 MG/M2, 1 IN 7 D, INTRAVENOUS (NOT OTHERWISE SPECIFIED)
     Route: 042
     Dates: start: 20140710, end: 20140710
  7. CLEMASTINA (CLEMASTINE FUMARATE) [Concomitant]

REACTIONS (4)
  - Back pain [None]
  - Pruritus generalised [None]
  - Abdominal pain [None]
  - Anaphylactic reaction [None]

NARRATIVE: CASE EVENT DATE: 20140710
